FAERS Safety Report 4360894-5 (Version None)
Quarter: 2004Q2

REPORT INFORMATION
  Report Type: 
  Country: None (occurrence: None)
  Receive Date: 20040520
  Receipt Date: 20040512
  Transmission Date: 20050107
  Serious: Yes (Other)
  Sender: FDA-Public Use
  Company Number: 200411542EU

PATIENT
  Age: 32 Year
  Sex: Male

DRUGS (4)
  1. ISONIAZID [Suspect]
     Indication: TUBERCULOSIS
  2. RIFAMPICIN [Suspect]
     Indication: TUBERCULOSIS
  3. ETHAMBUTOL HCL [Concomitant]
     Indication: TUBERCULOSIS
  4. PYRAZINAMIDE [Concomitant]
     Indication: TUBERCULOSIS

REACTIONS (6)
  - COAGULOPATHY [None]
  - DRUG RASH WITH EOSINOPHILIA AND SYSTEMIC SYMPTOMS [None]
  - HEPATIC FAILURE [None]
  - HEPATIC NECROSIS [None]
  - HEPATOTOXICITY [None]
  - PYREXIA [None]
